FAERS Safety Report 6665844-4 (Version None)
Quarter: 2010Q1

REPORT INFORMATION
  Report Type: 
  Country: None (occurrence: None)
  Receive Date: 20100329
  Receipt Date: 20091201
  Transmission Date: 20100710
  Serious: No
  Sender: FDA-Public Use
  Company Number: 2009-00775

PATIENT
  Age: 71 Year
  Sex: Female
  Weight: 46.7205 kg

DRUGS (5)
  1. COLD REMEDY NASAL GEL [Suspect]
     Dosage: SPORADIC - SEVERAL YRS : AFTER 2001 - RECENT
     Dates: start: 20010101
  2. ALENDRONATE SODIUM [Concomitant]
  3. ACYCLOVIR [Concomitant]
  4. VARIETY OF HERBAL PRODUCTS [Concomitant]
  5. MULTI-VITAMIN [Concomitant]

REACTIONS (2)
  - AGEUSIA [None]
  - ANOSMIA [None]
